FAERS Safety Report 7820353-1 (Version None)
Quarter: 2011Q4

REPORT INFORMATION
  Report Type: 
  Country: None (occurrence: None)
  Receive Date: 20111018
  Receipt Date: 20111013
  Transmission Date: 20120403
  Serious: Yes (Other)
  Sender: FDA-Public Use
  Company Number: US-ROCHE-1004624

PATIENT

DRUGS (1)
  1. AVASTIN [Suspect]
     Indication: EYE DISORDER
     Route: 031

REACTIONS (1)
  - CATHETERISATION CARDIAC [None]
